FAERS Safety Report 6525228-6 (Version None)
Quarter: 2009Q4

REPORT INFORMATION
  Report Type: 
  Country: None (occurrence: None)
  Receive Date: 20091228
  Receipt Date: 20091214
  Transmission Date: 20100525
  Serious: No
  Sender: FDA-Public Use
  Company Number: 008150

PATIENT
  Age: 80 Year
  Sex: Male

DRUGS (11)
  1. CILOSTAZOL [Suspect]
     Indication: INTERMITTENT CLAUDICATION
     Dosage: 100 MG, DAILY DOSE ORAL
     Route: 048
     Dates: start: 20091026, end: 20091027
  2. SIMVASTATIN [Concomitant]
  3. ASPIRIN [Concomitant]
  4. METFORMIN HCL [Concomitant]
  5. LANTUS [Concomitant]
  6. PLURIMEN (SELEGILINE HYDROCHLORIDE) [Concomitant]
  7. SINEMET [Concomitant]
  8. MIRAPEXIN (PRAMIPEXOLE DIHYDROCHLORIDE) [Concomitant]
  9. IRBESARTAN [Concomitant]
  10. PROMETAX (RIVASTIGMINE TARTRATE) [Concomitant]
  11. ALFUZOSIN (ALFUZOSIN) [Concomitant]

REACTIONS (2)
  - HYPOTENSION [None]
  - SINUS TACHYCARDIA [None]
